FAERS Safety Report 21721459 (Version 2)
Quarter: 2024Q3

REPORT INFORMATION
  Report Type: Spontaneous
  Country: RO (occurrence: RO)
  Receive Date: 20221213
  Receipt Date: 20240716
  Transmission Date: 20241017
  Serious: No
  Sender: ASTELLAS
  Company Number: RO-ASTELLAS-2022US044073

PATIENT
  Age: 58 Year
  Sex: Male

DRUGS (1)
  1. SOLIFENACIN [Suspect]
     Active Substance: SOLIFENACIN
     Indication: Urinary tract disorder
     Dosage: 5 MG, ONCE DAILY (1PC/DAY)
     Route: 065
     Dates: start: 20220201

REACTIONS (1)
  - Off label use [Unknown]

NARRATIVE: CASE EVENT DATE: 20220201
